FAERS Safety Report 6787708-8 (Version None)
Quarter: 2010Q2

REPORT INFORMATION
  Report Type: 
  Country: None (occurrence: None)
  Receive Date: 20100623
  Receipt Date: 20070618
  Transmission Date: 20101027
  Serious: Yes (Other)
  Sender: FDA-Public Use
  Company Number: US-PFIZER INC-2007050315

PATIENT
  Sex: Female
  Weight: 58.6 kg

DRUGS (2)
  1. DEPO-PROVERA SUSPENSION/INJ [Suspect]
     Indication: CONTRACEPTION
     Dosage: EVERY 12 WEEKS, FIRST INJECTION
     Route: 030
     Dates: start: 20040101, end: 20040101
  2. DEPO-PROVERA SUSPENSION/INJ [Suspect]
     Dosage: EVERY 12 WEEKS,MOST RECENT INJECTION
     Route: 030
     Dates: start: 20061219, end: 20061219

REACTIONS (2)
  - DRUG INEFFECTIVE [None]
  - UNINTENDED PREGNANCY [None]
